FAERS Safety Report 25549500 (Version 2)
Quarter: 2025Q3

REPORT INFORMATION
  Report Type: Report from Study
  Country: MX (occurrence: MX)
  Receive Date: 20250714
  Receipt Date: 20250728
  Transmission Date: 20251021
  Serious: Yes (Other)
  Sender: NOVARTIS
  Company Number: MX-002147023-NVSC2023MX242873

PATIENT
  Age: 58 Year
  Sex: Female
  Weight: 58 kg

DRUGS (10)
  1. MAYZENT [Suspect]
     Active Substance: SIPONIMOD
     Indication: Multiple sclerosis
     Dosage: 2 MG, QD
     Route: 048
     Dates: start: 20230823, end: 202309
  2. MAYZENT [Suspect]
     Active Substance: SIPONIMOD
     Dosage: 0.5 DOSAGE FORM, QD
     Route: 065
     Dates: start: 202309, end: 202310
  3. MAYZENT [Suspect]
     Active Substance: SIPONIMOD
     Dosage: (1/4TH OF 2MG)
     Route: 048
     Dates: start: 202310, end: 202401
  4. MAYZENT [Suspect]
     Active Substance: SIPONIMOD
     Route: 065
     Dates: start: 202401
  5. MAYZENT [Suspect]
     Active Substance: SIPONIMOD
     Dosage: 2 MG, QD
     Route: 048
     Dates: end: 202405
  6. MAYZENT [Suspect]
     Active Substance: SIPONIMOD
     Dosage: 2 MG, QD
     Route: 048
     Dates: end: 202410
  7. BACLOFEN [Concomitant]
     Active Substance: BACLOFEN
     Indication: Multiple sclerosis
     Dosage: 5 MG, Q8H (MILRIMAX - 10MG), TABLET
     Route: 048
  8. TIZANIDINE [Concomitant]
     Active Substance: TIZANIDINE
     Indication: Multiple sclerosis
     Dosage: 2 MG, Q12H, TABLET
     Route: 048
  9. LEVOTHYROXINE SODIUM [Concomitant]
     Active Substance: LEVOTHYROXINE SODIUM
     Indication: Hypothyroidism
     Dosage: 125 UG, Q24H, TABLET, STARTED 30 YEARS AGO
     Route: 048
  10. VITAMIN D [Concomitant]
     Active Substance: VITAMIN D NOS
     Indication: Multiple sclerosis
     Dosage: 10000 IU, Q24H, TABLET, STARTED 10 YEARS AGO
     Route: 048

REACTIONS (13)
  - Noninfective encephalitis [Recovered/Resolved]
  - Hypotension [Recovered/Resolved]
  - Limb discomfort [Recovering/Resolving]
  - Malaise [Unknown]
  - Peripheral swelling [Unknown]
  - Muscular weakness [Unknown]
  - Dysstasia [Unknown]
  - Language disorder [Recovered/Resolved]
  - Drug intolerance [Recovering/Resolving]
  - Speech disorder [Unknown]
  - Feeling of despair [Unknown]
  - Product availability issue [Unknown]
  - Off label use [Unknown]

NARRATIVE: CASE EVENT DATE: 20230823
